FAERS Safety Report 19369450 (Version 1)
Quarter: 2021Q2

REPORT INFORMATION
  Report Type: Report from Study
  Country: CA (occurrence: CA)
  Receive Date: 20210603
  Receipt Date: 20210603
  Transmission Date: 20210717
  Serious: Yes (Death, Hospitalization, Other)
  Sender: FDA-Public Use
  Company Number: PHHY2019CA008423

PATIENT
  Age: 71 Year
  Sex: Male

DRUGS (10)
  1. INSULIN [Concomitant]
     Active Substance: INSULIN NOS
     Indication: DIABETES MELLITUS
     Dosage: UNK, QHS (AT NIGHT BEFORE BED)
     Route: 065
     Dates: start: 2017
  2. TYLENOL [Concomitant]
     Active Substance: ACETAMINOPHEN
     Indication: PRODUCT USED FOR UNKNOWN INDICATION
     Dosage: UNK
     Route: 065
  3. SANDOSTATIN LAR DEPOT [Suspect]
     Active Substance: OCTREOTIDE ACETATE
  4. LEVOTHYROXINE. [Suspect]
     Active Substance: LEVOTHYROXINE
     Indication: PRODUCT USED FOR UNKNOWN INDICATION
     Dosage: UNK
     Route: 065
  5. SANDOSTATIN LAR DEPOT [Suspect]
     Active Substance: OCTREOTIDE ACETATE
     Dosage: 60 MG, Q2W
     Route: 030
     Dates: start: 20190307
  6. SANDOSTATIN [Suspect]
     Active Substance: OCTREOTIDE ACETATE
     Dosage: 200 UG, UNK
     Route: 058
     Dates: start: 20130802
  7. SANDOSTATIN LAR DEPOT [Suspect]
     Active Substance: OCTREOTIDE ACETATE
     Indication: CARCINOID TUMOUR
     Dosage: 60 MG, Q2W
     Route: 030
     Dates: start: 20120706
  8. SANDOSTATIN [Suspect]
     Active Substance: OCTREOTIDE ACETATE
     Indication: CARCINOID TUMOUR
     Dosage: 200 UG, UNK
     Route: 058
     Dates: start: 20130201
  9. SANDOSTATIN [Suspect]
     Active Substance: OCTREOTIDE ACETATE
  10. ATENOLOL. [Concomitant]
     Active Substance: ATENOLOL
     Indication: PRODUCT USED FOR UNKNOWN INDICATION
     Dosage: UNK
     Route: 065

REACTIONS (27)
  - Oedema peripheral [Unknown]
  - Drug level decreased [Unknown]
  - Pain in extremity [Unknown]
  - Peripheral swelling [Unknown]
  - Erythema [Recovered/Resolved]
  - Product dose omission issue [Unknown]
  - Deep vein thrombosis [Unknown]
  - Malaise [Unknown]
  - Movement disorder [Unknown]
  - Death [Fatal]
  - Influenza like illness [Unknown]
  - Hot flush [Unknown]
  - Photosensitivity reaction [Recovering/Resolving]
  - Diarrhoea [Unknown]
  - Thyroid neoplasm [Unknown]
  - Nasopharyngitis [Unknown]
  - Pruritus [Unknown]
  - Erythema [Recovered/Resolved]
  - Weight decreased [Unknown]
  - Pain [Unknown]
  - Feeling hot [Recovering/Resolving]
  - Inappropriate schedule of product administration [Unknown]
  - Lung neoplasm [Unknown]
  - Blood pressure increased [Unknown]
  - Photosensitivity reaction [Recovered/Resolved]
  - Headache [Unknown]
  - Drug ineffective [Unknown]

NARRATIVE: CASE EVENT DATE: 2019
